FAERS Safety Report 19994432 (Version 4)
Quarter: 2021Q4

REPORT INFORMATION
  Report Type: Spontaneous
  Country: JP (occurrence: JP)
  Receive Date: 20211025
  Receipt Date: 20211230
  Transmission Date: 20220303
  Serious: Yes (Hospitalization)
  Sender: FDA-Public Use
  Company Number: JP-ONO-2021JP025767

PATIENT

DRUGS (15)
  1. ONGENTYS [Suspect]
     Active Substance: OPICAPONE
     Indication: Parkinson^s disease
     Dosage: 25 MILLIGRAM, EVERYDAY
     Route: 048
     Dates: start: 20210819
  2. CARBIDOPA\LEVODOPA [Suspect]
     Active Substance: CARBIDOPA\LEVODOPA
     Indication: Parkinson^s disease
     Dosage: 516 MILLIGRAM, EVERYDAY
     Route: 048
  3. CARBIDOPA\LEVODOPA [Suspect]
     Active Substance: CARBIDOPA\LEVODOPA
     Dosage: 675 MILLIGRAM, EVERYDAY
     Route: 048
  4. CARBIDOPA\LEVODOPA [Suspect]
     Active Substance: CARBIDOPA\LEVODOPA
     Dosage: 150 MILLIGRAM, 3X / DAY
     Route: 048
     Dates: start: 202110
  5. CARBIDOPA\LEVODOPA [Suspect]
     Active Substance: CARBIDOPA\LEVODOPA
     Dosage: 50 MILLIGRAM, 3X / DAY
     Route: 048
  6. CARBIDOPA\LEVODOPA [Suspect]
     Active Substance: CARBIDOPA\LEVODOPA
     Dosage: 516 MILLIGRAM, EVERYDAY
     Route: 048
  7. CARBIDOPA\LEVODOPA [Suspect]
     Active Substance: CARBIDOPA\LEVODOPA
     Dosage: 675 MILLIGRAM, EVERYDAY
     Route: 048
  8. CARBIDOPA\LEVODOPA [Suspect]
     Active Substance: CARBIDOPA\LEVODOPA
     Dosage: 50 MILLIGRAM, 3X / DAY
     Route: 048
  9. SELEGILINE HYDROCHLORIDE [Concomitant]
     Active Substance: SELEGILINE HYDROCHLORIDE
     Dosage: UNK
  10. ZONISAMIDE [Concomitant]
     Active Substance: ZONISAMIDE
     Dosage: UNK
  11. ISTRADEFYLLINE [Concomitant]
     Active Substance: ISTRADEFYLLINE
     Dosage: UNK
  12. HERBALS [Concomitant]
     Active Substance: HERBALS
     Dosage: 2.5 GRAM, ONCE A DAY, IN THE EVENING
  13. HERBALS [Concomitant]
     Active Substance: HERBALS
     Dosage: 2.5 GRAM, ONCE A DAY, IN THE EVENING
  14. DONEPEZIL HYDROCHLORIDE [Concomitant]
     Active Substance: DONEPEZIL HYDROCHLORIDE
     Dosage: 1 TABLET, ONCE A DAY, IN  THE EVENING
  15. DONEPEZIL HYDROCHLORIDE [Concomitant]
     Active Substance: DONEPEZIL HYDROCHLORIDE
     Dosage: 1 TABLET, ONCE A DAY, IN  THE EVENING

REACTIONS (1)
  - Psychosexual disorder [Recovered/Resolved]

NARRATIVE: CASE EVENT DATE: 20210920
